FAERS Safety Report 8772349 (Version 2)
Quarter: 2012Q4

REPORT INFORMATION
  Report Type: 
  Country: CA (occurrence: CA)
  Receive Date: 20120905
  Receipt Date: 20121004
  Transmission Date: 20130627
  Serious: Yes (Other)
  Sender: FDA-Public Use
  Company Number: PHHY2012CA076674

PATIENT
  Age: 80 Year
  Sex: Female

DRUGS (4)
  1. ACLASTA [Suspect]
     Indication: OSTEOPOROSIS
     Dosage: 5 mg, UNK
     Route: 042
     Dates: start: 20090716
  2. ACLASTA [Suspect]
     Dosage: 5 mg, UNK
     Route: 042
     Dates: start: 20100831
  3. ACLASTA [Suspect]
     Dosage: 5 mg, UNK
     Route: 042
     Dates: start: 20110920
  4. ACLASTA [Suspect]
     Dosage: 5 mg, UNK
     Route: 042
     Dates: start: 20120926

REACTIONS (4)
  - General physical health deterioration [Unknown]
  - Poor venous access [Not Recovered/Not Resolved]
  - Pain [Unknown]
  - Mobility decreased [Unknown]
